FAERS Safety Report 6646650-3 (Version None)
Quarter: 2010Q1

REPORT INFORMATION
  Report Type: 
  Country: None (occurrence: None)
  Receive Date: 20100322
  Receipt Date: 20100322
  Transmission Date: 20100710
  Serious: No
  Sender: FDA-Public Use
  Company Number: None

PATIENT
  Age: 59 Year
  Sex: Male

DRUGS (2)
  1. DORIPENEM [Suspect]
     Indication: LUNG INFECTION PSEUDOMONAL
     Dosage: 500 MG TID IV
     Route: 042
  2. DORIPENEM [Suspect]
     Indication: SEPSIS
     Dosage: 500 MG TID IV
     Route: 042

REACTIONS (6)
  - BLISTER [None]
  - HEAT RASH [None]
  - INFECTION [None]
  - OEDEMA [None]
  - RASH ERYTHEMATOUS [None]
  - RASH MACULO-PAPULAR [None]
